FAERS Safety Report 7893550-7 (Version None)
Quarter: 2011Q4

REPORT INFORMATION
  Report Type: 
  Country: None (occurrence: None)
  Receive Date: 20111104
  Receipt Date: 20111102
  Transmission Date: 20120403
  Serious: Yes (Other)
  Sender: FDA-Public Use
  Company Number: US-AMGEN-USASP2011055835

PATIENT
  Age: 58 Year
  Sex: Male
  Weight: 97.234 kg

DRUGS (6)
  1. ANDRODERM [Concomitant]
     Dosage: 5 MG, QD
     Route: 062
  2. NPLATE [Suspect]
     Indication: IDIOPATHIC THROMBOCYTOPENIC PURPURA
     Dosage: 1 MUG/KG, UNK
     Dates: start: 20090629
  3. AMBIEN CR [Concomitant]
     Indication: INSOMNIA
     Dosage: 6.25 MG, QD
  4. AMITRIPTYLINE HCL [Concomitant]
     Indication: NEURALGIA
     Dosage: 25 MG, QD
     Route: 048
  5. MORPHINE [Concomitant]
     Indication: PAIN
     Dosage: 30 MG, BID
     Route: 048
  6. CALCIUM +D                         /00188401/ [Concomitant]
     Indication: OSTEOPOROSIS
     Route: 048

REACTIONS (2)
  - HAEMATURIA [None]
  - PLATELET AGGREGATION INCREASED [None]
